FAERS Safety Report 24569542 (Version 1)
Quarter: 2024Q4

REPORT INFORMATION
  Report Type: Spontaneous
  Country: DE (occurrence: DE)
  Receive Date: 20241031
  Receipt Date: 20241031
  Transmission Date: 20250114
  Serious: Yes (Other)
  Sender: UCB
  Company Number: DE-UCBSA-2024056138

PATIENT
  Age: 38 Year
  Sex: Female

DRUGS (1)
  1. BRIVIACT [Suspect]
     Active Substance: BRIVARACETAM
     Indication: Product used for unknown indication
     Dosage: 20 ML PER DAY

REACTIONS (4)
  - Epilepsy [Not Recovered/Not Resolved]
  - Apallic syndrome [Not Recovered/Not Resolved]
  - Paralysis [Not Recovered/Not Resolved]
  - Alopecia [Not Recovered/Not Resolved]
